FAERS Safety Report 24935212 (Version 3)
Quarter: 2025Q1

REPORT INFORMATION
  Report Type: Spontaneous
  Country: JP (occurrence: JP)
  Receive Date: 20250206
  Receipt Date: 20250327
  Transmission Date: 20250409
  Serious: Yes (Hospitalization)
  Sender: ASTELLAS
  Company Number: JP-ASTELLAS-2024-AER-001024

PATIENT
  Age: 50 Year
  Sex: Female
  Weight: 55 kg

DRUGS (19)
  1. VYLOY [Suspect]
     Active Substance: ZOLBETUXIMAB-CLZB
     Indication: Gastric cancer
     Route: 042
     Dates: start: 20240821, end: 20240821
  2. VYLOY [Suspect]
     Active Substance: ZOLBETUXIMAB-CLZB
     Route: 042
     Dates: start: 20240913
  3. VYLOY [Suspect]
     Active Substance: ZOLBETUXIMAB-CLZB
     Route: 042
  4. FLUOROURACIL INJECTION ^TOWA^ [Concomitant]
     Indication: Product used for unknown indication
     Route: 042
     Dates: start: 20240821, end: 20240821
  5. FLUOROURACIL INJECTION ^TOWA^ [Concomitant]
     Route: 042
  6. Oxaliplatin for I.V. Infusion [Concomitant]
     Indication: Product used for unknown indication
     Route: 042
     Dates: start: 20240821, end: 20240821
  7. Oxaliplatin for I.V. Infusion [Concomitant]
     Route: 042
  8. Levofolinate for I.V. infusion 100mg?Yakult? [Concomitant]
     Indication: Product used for unknown indication
     Route: 042
     Dates: start: 20240821, end: 20240821
  9. Levofolinate for I.V. infusion 100mg?Yakult? [Concomitant]
     Route: 042
  10. PRIMPERAN [Concomitant]
     Active Substance: METOCLOPRAMIDE HYDROCHLORIDE
     Indication: Nausea
     Route: 048
     Dates: start: 20240821
  11. THYRADIN S tablet 50?g [Concomitant]
     Indication: Product used for unknown indication
     Route: 048
  12. CALCIUM LACTATE 1g [Concomitant]
     Indication: Product used for unknown indication
     Dosage: 1 G/BAG
     Route: 048
  13. MIYA-BM tablet [Concomitant]
     Indication: Product used for unknown indication
     Dosage: 3 TABLETS IN 3 DIVIDED DOSES
     Route: 048
  14. AMLODIPINE tablet 2.5 mg [Concomitant]
     Indication: Product used for unknown indication
     Route: 048
  15. Feburic tablet 20 mg [Concomitant]
     Indication: Product used for unknown indication
     Route: 048
  16. PARMODIA tablet 0.1mg [Concomitant]
     Indication: Product used for unknown indication
     Route: 048
  17. Alfacalcidol tablet 0.5?g?AMEL? [Concomitant]
     Indication: Product used for unknown indication
     Route: 048
  18. VALSARTAN tablet 80mg?SAWAI? [Concomitant]
     Indication: Product used for unknown indication
     Route: 048
  19. Takecab tablet 10mg [Concomitant]
     Indication: Product used for unknown indication
     Route: 048

REACTIONS (12)
  - Decreased appetite [Recovered/Resolved]
  - Hypoalbuminaemia [Not Recovered/Not Resolved]
  - Nausea [Recovered/Resolved]
  - Malaise [Recovered/Resolved]
  - Nausea [Recovered/Resolved]
  - Nausea [Recovered/Resolved]
  - Feeling cold [Recovered/Resolved]
  - Cold sweat [Recovered/Resolved]
  - Diarrhoea [Recovered/Resolved]
  - Hyponatraemia [Recovered/Resolved]
  - Oedema peripheral [Not Recovered/Not Resolved]
  - Nausea [Recovered/Resolved]

NARRATIVE: CASE EVENT DATE: 20240821
